FAERS Safety Report 9571696 (Version 2)
Quarter: 2014Q3

REPORT INFORMATION
  Report Type: Report from Study
  Country: US (occurrence: US)
  Receive Date: 20131001
  Receipt Date: 20140705
  Transmission Date: 20150326
  Serious: Yes (Hospitalization, Other)
  Sender: FDA-Public Use
  Company Number: US-ALEXION PHARMACEUTICALS INC.-A201202641

PATIENT

DRUGS (1)
  1. SOLIRIS [Suspect]
     Active Substance: ECULIZUMAB
     Indication: HAEMOLYTIC URAEMIC SYNDROME
     Dosage: UNK
     Route: 042
     Dates: start: 201205

REACTIONS (11)
  - Subdural haematoma [Unknown]
  - Dialysis [Unknown]
  - Thrombotic microangiopathy [Unknown]
  - Coronary artery bypass [Unknown]
  - Fall [Unknown]
  - Catheter removal [Unknown]
  - Memory impairment [Unknown]
  - Cerebrovascular accident [Unknown]
  - Catheter placement [Unknown]
  - Head injury [Unknown]
  - Mitral valve replacement [Unknown]

NARRATIVE: CASE EVENT DATE: 201205
